FAERS Safety Report 7618244-4 (Version None)
Quarter: 2011Q3

REPORT INFORMATION
  Report Type: 
  Country: None (occurrence: None)
  Receive Date: 20110718
  Receipt Date: 20110712
  Transmission Date: 20111222
  Serious: Yes (Other)
  Sender: FDA-Public Use
  Company Number: US-VIIV HEALTHCARE LIMITED-B0725031A

PATIENT
  Age: 54 Year
  Sex: Male
  Weight: 73.6 kg

DRUGS (9)
  1. MARAVIROC [Suspect]
     Indication: HIV INFECTION
     Dosage: 300MG PER DAY
     Route: 048
     Dates: start: 20100126, end: 20110503
  2. ZETIA [Concomitant]
     Indication: BLOOD CHOLESTEROL
     Dosage: 10MG PER DAY
     Dates: start: 20090316
  3. TRICOR [Concomitant]
     Indication: HYPERCHOLESTEROLAEMIA
     Dosage: 145MG PER DAY
     Dates: start: 20090316
  4. SEROSTIM [Concomitant]
     Indication: CACHEXIA
     Dosage: 25CC PER DAY
     Dates: start: 20090316
  5. BENICAR [Concomitant]
     Indication: HYPERTENSION
     Dosage: 40MG PER DAY
     Dates: start: 20090316
  6. EPZICOM [Concomitant]
  7. ISENTRESS [Concomitant]
     Indication: HIV INFECTION
     Dosage: 400MG TWICE PER DAY
     Dates: start: 20080401
  8. ATIVAN [Concomitant]
     Indication: ANXIETY
     Dates: start: 20100624
  9. MARAVIROC [Suspect]
     Dosage: 150MG PER DAY
     Route: 048
     Dates: start: 20110503

REACTIONS (2)
  - HEPATITIS C [None]
  - HEPATIC CIRRHOSIS [None]
